FAERS Safety Report 8985625 (Version 1)
Quarter: 2012Q4

REPORT INFORMATION
  Report Type: 
  Country: CA (occurrence: CA)
  Receive Date: 20121226
  Receipt Date: 20121226
  Transmission Date: 20130627
  Serious: Yes (Other)
  Sender: FDA-Public Use
  Company Number: CA-AMGEN-CANSP2012082729

PATIENT
  Age: 61 Year
  Sex: Female
  Weight: 70 kg

DRUGS (2)
  1. PROLIA [Suspect]
     Indication: OSTEOPOROSIS
     Dosage: UNK
     Dates: start: 20120119
  2. CALCIUM [Concomitant]
     Dosage: UNK
     Dates: end: 201210

REACTIONS (5)
  - Pulmonary sarcoidosis [Not Recovered/Not Resolved]
  - Visual impairment [Unknown]
  - Eye inflammation [Unknown]
  - Blood calcium increased [Unknown]
  - Musculoskeletal pain [Not Recovered/Not Resolved]
